FAERS Safety Report 5718976-9 (Version None)
Quarter: 2008Q2

REPORT INFORMATION
  Report Type: 
  Country: None (occurrence: None)
  Receive Date: 20080425
  Receipt Date: 20080418
  Transmission Date: 20081010
  Serious: Yes (Other)
  Sender: FDA-Public Use
  Company Number: PHEH2008US01646

PATIENT
  Sex: Female

DRUGS (2)
  1. TRILEPTAL [Suspect]
     Indication: CONVULSION
     Dosage: 1/2 TSP BID/1 WK, 1 TSP BID
     Dates: start: 20061101
  2. NAPROXEN [Concomitant]

REACTIONS (9)
  - HEADACHE [None]
  - MONONUCLEOSIS HETEROPHILE TEST POSITIVE [None]
  - PHOBIA [None]
  - PHOTOPHOBIA [None]
  - PLATELET COUNT INCREASED [None]
  - PYREXIA [None]
  - RASH GENERALISED [None]
  - SOMNOLENCE [None]
  - WHITE BLOOD CELL COUNT DECREASED [None]
